FAERS Safety Report 6255974-3 (Version None)
Quarter: 2009Q3

REPORT INFORMATION
  Report Type: 
  Country: None (occurrence: None)
  Receive Date: 20090706
  Receipt Date: 20090701
  Transmission Date: 20100115
  Serious: Yes (Hospitalization)
  Sender: FDA-Public Use
  Company Number: US-BRISTOL-MYERS SQUIBB COMPANY-14687214

PATIENT
  Age: 48 Year
  Sex: Male
  Weight: 54 kg

DRUGS (4)
  1. ERBITUX [Suspect]
     Indication: NON-SMALL CELL LUNG CANCER
     Dosage: INITIATED ON 10MAR09
     Dates: start: 20090616, end: 20090616
  2. CARBOPLATIN [Suspect]
     Indication: NON-SMALL CELL LUNG CANCER
     Dosage: INITIATED ON 10MAR09
     Dates: start: 20090616, end: 20090616
  3. TAXOL [Suspect]
     Indication: NON-SMALL CELL LUNG CANCER
     Dosage: INITIATED ON 10MAR09
     Dates: start: 20090616, end: 20090616
  4. RADIATION THERAPY [Suspect]
     Indication: NON-SMALL CELL LUNG CANCER
     Dosage: 1 DF = 6000 CGY NO. OF FRACTIONS:30 NO. OF ELAPSED DAYS: 43
     Dates: start: 20090310, end: 20090616

REACTIONS (4)
  - CEREBRAL ISCHAEMIA [None]
  - DECREASED APPETITE [None]
  - ENDOCARDITIS [None]
  - PNEUMONIA [None]
